FAERS Safety Report 13825874 (Version 1)
Quarter: 2017Q3

REPORT INFORMATION
  Report Type: Spontaneous
  Country: AU (occurrence: AU)
  Receive Date: 20170802
  Receipt Date: 20170802
  Transmission Date: 20171127
  Serious: Yes (Hospitalization, Other)
  Sender: FDA-Public Use
  Company Number: AU-BRISTOL-MYERS SQUIBB COMPANY-BMS-2017-068834

PATIENT
  Age: 43 Year
  Sex: Male

DRUGS (2)
  1. PEMBROLIZUMAB. [Suspect]
     Active Substance: PEMBROLIZUMAB
     Indication: MALIGNANT MELANOMA
     Dosage: 2 MG/KG, Q3WK
     Route: 065
  2. IPILIMUMAB [Suspect]
     Active Substance: IPILIMUMAB
     Indication: MALIGNANT MELANOMA
     Dosage: 3 MG/KG, Q3WK OF 2 CYCLE
     Route: 065

REACTIONS (6)
  - Fatigue [Unknown]
  - Pancreatitis [Unknown]
  - Pruritus [Unknown]
  - Small intestinal obstruction [Recovering/Resolving]
  - Intestinal stent insertion [Unknown]
  - Tendonitis [Unknown]
